FAERS Safety Report 14169580 (Version 2)
Quarter: 2018Q1

REPORT INFORMATION
  Report Type: Spontaneous
  Country: US (occurrence: US)
  Receive Date: 20171108
  Receipt Date: 20180129
  Transmission Date: 20180508
  Serious: Yes (Other)
  Sender: FDA-Public Use
  Company Number: US-AMGEN-USASP2017165317

PATIENT
  Age: 67 Year
  Sex: Female

DRUGS (3)
  1. PRAMIPEXOLE. [Concomitant]
     Active Substance: PRAMIPEXOLE
     Dosage: UNK
  2. TRIAMTERENE. [Concomitant]
     Active Substance: TRIAMTERENE
     Dosage: UNK
  3. PROLIA [Suspect]
     Active Substance: DENOSUMAB
     Indication: OSTEOPOROSIS POSTMENOPAUSAL
     Dosage: UNK
     Route: 065
     Dates: start: 201604

REACTIONS (7)
  - Drug hypersensitivity [Unknown]
  - Loose tooth [Unknown]
  - Arthralgia [Unknown]
  - Pain in jaw [Unknown]
  - Medical device discomfort [Unknown]
  - Tooth loss [Unknown]
  - Speech disorder [Unknown]
